FAERS Safety Report 15777055 (Version 2)
Quarter: 2019Q1

REPORT INFORMATION
  Report Type: Report from Study
  Country: MX (occurrence: MX)
  Receive Date: 20181231
  Receipt Date: 20190121
  Transmission Date: 20190417
  Serious: Yes (Other)
  Sender: FDA-Public Use
  Company Number: MX-BAYER-2018-155409

PATIENT
  Age: 68 Year
  Sex: Female
  Weight: 78 kg

DRUGS (3)
  1. NEXAVAR [Suspect]
     Active Substance: SORAFENIB
     Indication: HEPATOCELLULAR CARCINOMA
     Dosage: 400 MG, BID
     Route: 048
     Dates: start: 201809
  2. NEXAVAR [Suspect]
     Active Substance: SORAFENIB
     Indication: HEPATOCELLULAR CARCINOMA
     Dosage: 400 MG, BID
     Route: 048
     Dates: start: 20180423, end: 20180903
  3. CAPTOPRIL. [Concomitant]
     Active Substance: CAPTOPRIL

REACTIONS (43)
  - Tumour pain [Not Recovered/Not Resolved]
  - Mobility decreased [Not Recovered/Not Resolved]
  - Scab [Not Recovered/Not Resolved]
  - Feeling of despair [Not Recovered/Not Resolved]
  - Food aversion [Recovered/Resolved]
  - Hypoaesthesia [Recovered/Resolved]
  - Fatigue [Not Recovered/Not Resolved]
  - Alopecia [Not Recovered/Not Resolved]
  - Tumour pain [Recovered/Resolved]
  - Varicose vein [Not Recovered/Not Resolved]
  - Skin lesion [Not Recovered/Not Resolved]
  - Feeding disorder [Recovered/Resolved]
  - Depressed mood [Not Recovered/Not Resolved]
  - Decreased appetite [Not Recovered/Not Resolved]
  - Hyperkeratosis [Not Recovered/Not Resolved]
  - Fatigue [Not Recovered/Not Resolved]
  - Acne [Not Recovered/Not Resolved]
  - Hepatocellular carcinoma [None]
  - Tumour inflammation [Recovered/Resolved]
  - Erythema [Not Recovered/Not Resolved]
  - Burning sensation [Not Recovered/Not Resolved]
  - Feeling abnormal [Recovered/Resolved with Sequelae]
  - Energy increased [Not Recovered/Not Resolved]
  - Weight increased [Not Recovered/Not Resolved]
  - Platelet count increased [Not Recovered/Not Resolved]
  - Pain [Not Recovered/Not Resolved]
  - Blood pressure increased [Not Recovered/Not Resolved]
  - Nausea [Recovered/Resolved]
  - Drug ineffective [Recovered/Resolved]
  - Hypersomnia [Not Recovered/Not Resolved]
  - Dizziness [Not Recovered/Not Resolved]
  - Dizziness [None]
  - Dyspnoea [Recovered/Resolved with Sequelae]
  - Erythema of eyelid [Not Recovered/Not Resolved]
  - Skin irritation [Recovering/Resolving]
  - Abdominal pain [Recovering/Resolving]
  - Dry skin [Recovering/Resolving]
  - Discomfort [Not Recovered/Not Resolved]
  - Discomfort [Recovered/Resolved]
  - Food refusal [Not Recovered/Not Resolved]
  - Muscle spasms [Not Recovered/Not Resolved]
  - Pain in extremity [Not Recovered/Not Resolved]
  - Fatigue [Not Recovered/Not Resolved]

NARRATIVE: CASE EVENT DATE: 2018
